FAERS Safety Report 6589508-0 (Version None)
Quarter: 2010Q1

REPORT INFORMATION
  Report Type: 
  Country: None (occurrence: None)
  Receive Date: 20100212
  Receipt Date: 20100201
  Transmission Date: 20100710
  Serious: No
  Sender: FDA-Public Use
  Company Number: 20097656

PATIENT
  Age: 52 Year
  Sex: Male
  Weight: 62 kg

DRUGS (1)
  1. BACLOFEN [Suspect]
     Indication: MUSCLE SPASTICITY
     Dosage: 39.9 - 55 MCG, DAILY, INTRATHECAL - S

REACTIONS (3)
  - CONDITION AGGRAVATED [None]
  - DECUBITUS ULCER [None]
  - WOUND INFECTION [None]
